FAERS Safety Report 15878542 (Version 1)
Quarter: 2019Q1

REPORT INFORMATION
  Report Type: Spontaneous
  Country: CN (occurrence: CN)
  Receive Date: 20190128
  Receipt Date: 20190128
  Transmission Date: 20190417
  Serious: Yes (Other)
  Sender: FDA-Public Use
  Company Number: CN-009507513-1901CHN008789

PATIENT
  Age: 61 Year
  Sex: Male
  Weight: 65 kg

DRUGS (2)
  1. KEYTRUDA [Suspect]
     Active Substance: PEMBROLIZUMAB
     Indication: TARGETED CANCER THERAPY
     Dosage: 200 MILLIGRAM, QD
     Route: 042
     Dates: start: 20181109
  2. KEYTRUDA [Suspect]
     Active Substance: PEMBROLIZUMAB
     Dosage: 200 MILLIGRAM, QD
     Route: 042
     Dates: start: 20181204

REACTIONS (3)
  - Pericardial effusion [Recovering/Resolving]
  - Product use in unapproved indication [Unknown]
  - Malignant neoplasm of thymus [Recovering/Resolving]

NARRATIVE: CASE EVENT DATE: 20181109
